FAERS Safety Report 4938288-0 (Version None)
Quarter: 2006Q1

REPORT INFORMATION
  Report Type: 
  Country: None (occurrence: None)
  Receive Date: 20060309
  Receipt Date: 20050909
  Transmission Date: 20060701
  Serious: Yes (Life-Threatening, Hospitalization)
  Sender: FDA-Public Use
  Company Number: US-GLAXOSMITHKLINE-A0573578A

PATIENT
  Age: 58 Year
  Sex: Female
  Weight: 78.2 kg

DRUGS (11)
  1. COREG [Suspect]
     Dosage: 3.125MG TWICE PER DAY
     Route: 048
     Dates: start: 20050501, end: 20050728
  2. INSULIN [Concomitant]
  3. ASPIRIN [Concomitant]
  4. POTASSIUM [Concomitant]
  5. NEURONTIN [Concomitant]
  6. GLUCOPHAGE [Concomitant]
  7. GLYBURIDE [Concomitant]
  8. LASIX [Concomitant]
  9. PROZAC [Concomitant]
  10. PREMARIN [Concomitant]
  11. VICODIN [Concomitant]

REACTIONS (14)
  - ABDOMINAL PAIN [None]
  - ABDOMINAL PAIN UPPER [None]
  - ANOREXIA [None]
  - BLOOD BILIRUBIN INCREASED [None]
  - CARDIAC VALVE DISEASE [None]
  - CHROMATURIA [None]
  - FAECES DISCOLOURED [None]
  - HEPATIC ENZYME INCREASED [None]
  - JAUNDICE [None]
  - NAUSEA [None]
  - OCULAR ICTERUS [None]
  - OEDEMA [None]
  - PULMONARY CONGESTION [None]
  - WEIGHT INCREASED [None]
